FAERS Safety Report 14187049 (Version 1)
Quarter: 2017Q4

REPORT INFORMATION
  Report Type: Spontaneous
  Country: US (occurrence: US)
  Receive Date: 20171113
  Receipt Date: 20171113
  Transmission Date: 20180321
  Serious: Yes (Death)
  Sender: FDA-Public Use
  Company Number: None

PATIENT
  Age: 49 Year
  Sex: Female

DRUGS (2)
  1. FLUDARABINE [Suspect]
     Active Substance: FLUDARABINE PHOSPHATE
     Indication: STEM CELL TRANSPLANT
     Dosage: INTRAVENOUS (NOT OTHERWISE SPECIFIED)
     Route: 042
     Dates: start: 20170612, end: 20170617
  2. HORSE ANTITHYMOCYTE GLOBULIN [Concomitant]
     Active Substance: EQUINE THYMOCYTE IMMUNE GLOBULIN

REACTIONS (10)
  - Respiratory failure [None]
  - Mydriasis [None]
  - Leukoencephalopathy [None]
  - Transaminases increased [None]
  - Fluid overload [None]
  - Acute kidney injury [None]
  - Acute respiratory distress syndrome [None]
  - Subarachnoid haemorrhage [None]
  - Metabolic acidosis [None]
  - Encephalopathy [None]

NARRATIVE: CASE EVENT DATE: 20170619
